FAERS Safety Report 7628746-2 (Version None)
Quarter: 2011Q3

REPORT INFORMATION
  Report Type: 
  Country: None (occurrence: None)
  Receive Date: 20110714
  Receipt Date: 20110628
  Transmission Date: 20111222
  Serious: Yes (Other)
  Sender: FDA-Public Use
  Company Number: DSA_47131_2011

PATIENT
  Age: 72 Year
  Sex: Male

DRUGS (17)
  1. CHOLECALCIFEROL [Concomitant]
  2. BETALOC [Concomitant]
  3. BENZBROMARONE [Concomitant]
  4. COLCHICINE [Concomitant]
  5. DIGOXIN [Concomitant]
  6. PREDNISONE [Concomitant]
  7. FUROSEMIDE [Concomitant]
  8. BETALOC [Concomitant]
  9. COLCHICINE [Concomitant]
  10. CARDIZEM CD [Suspect]
     Indication: ARRHYTHMIA
     Dosage: 120 MG QD, ORAL
     Route: 048
     Dates: start: 20110504, end: 20110527
  11. WARFARIN SODIUM [Concomitant]
  12. ALENDRONATE SODIUM [Concomitant]
  13. THIAMINE [Concomitant]
  14. AZATHIOPRINE [Concomitant]
  15. CHOLECALCIFEROL [Concomitant]
  16. FOLIC ACID [Concomitant]
  17. ALENDRONATE SODIUM [Concomitant]

REACTIONS (3)
  - AMNESIA [None]
  - CONFUSIONAL STATE [None]
  - HALLUCINATION [None]
